FAERS Safety Report 11535648 (Version 1)
Quarter: 2015Q3

REPORT INFORMATION
  Report Type: Spontaneous
  Country: US (occurrence: US)
  Receive Date: 20150903
  Receipt Date: 20150903
  Transmission Date: 20151125
  Serious: No
  Sender: FDA-Public Use
  Company Number: US-ELI_LILLY_AND_COMPANY-US201104006230

PATIENT
  Age: 45 Year
  Sex: Male

DRUGS (2)
  1. LANTUS SOLOSTAR [Concomitant]
     Active Substance: INSULIN GLARGINE
     Dosage: UNK
  2. HUMALOG [Suspect]
     Active Substance: INSULIN LISPRO
     Indication: TYPE 2 DIABETES MELLITUS
     Dosage: 5 U, TID

REACTIONS (4)
  - Constipation [Unknown]
  - Eructation [Unknown]
  - Throat irritation [Unknown]
  - Diarrhoea [Unknown]

NARRATIVE: CASE EVENT DATE: 201101
